FAERS Safety Report 6257723-1 (Version None)
Quarter: 2009Q3

REPORT INFORMATION
  Report Type: 
  Country: None (occurrence: None)
  Receive Date: 20090702
  Receipt Date: 20090630
  Transmission Date: 20100115
  Serious: Yes (Life-Threatening, Hospitalization)
  Sender: FDA-Public Use
  Company Number: DE-EBEWE-0865FLUOROCISO9

PATIENT
  Age: 72 Year
  Sex: Female
  Weight: 78 kg

DRUGS (2)
  1. FLUOROURACIL [Suspect]
     Indication: GASTRIC CANCER STAGE IV
     Dosage: INTRAVENOUS
     Route: 042
     Dates: start: 20090305, end: 20090411
  2. CISPLATIN [Suspect]
     Indication: GASTRIC CANCER STAGE IV
     Dosage: 60 MG/M2, INTRAVENOUS
     Route: 042
     Dates: start: 20090305, end: 20090326

REACTIONS (3)
  - PULMONARY EMBOLISM [None]
  - VENA CAVA THROMBOSIS [None]
  - VENIPUNCTURE SITE THROMBOSIS [None]
